FAERS Safety Report 5512740-1 (Version None)
Quarter: 2007Q4

REPORT INFORMATION
  Report Type: 
  Country: None (occurrence: None)
  Receive Date: 20071112
  Receipt Date: 20071030
  Transmission Date: 20080405
  Serious: Yes (Other)
  Sender: FDA-Public Use
  Company Number: CA-ROCHE-528382

PATIENT
  Age: 16 Year
  Sex: Male

DRUGS (1)
  1. ACCUTANE [Suspect]
     Indication: DRUG USE FOR UNKNOWN INDICATION
     Route: 065

REACTIONS (6)
  - AGGRESSION [None]
  - APATHY [None]
  - DECREASED APPETITE [None]
  - ERYTHEMA [None]
  - FATIGUE [None]
  - PERSONALITY CHANGE [None]
